FAERS Safety Report 23666129 (Version 1)
Quarter: 2024Q1

REPORT INFORMATION
  Report Type: Spontaneous
  Country: GB (occurrence: GB)
  Receive Date: 20240324
  Receipt Date: 20240324
  Transmission Date: 20240410
  Serious: Yes (Other)
  Sender: FDA-Public Use
  Company Number: GB-MHRA-MED-202403101934550540-NBCYQ

PATIENT
  Age: 70 Year
  Sex: Male
  Weight: 120 kg

DRUGS (2)
  1. AMLODIPINE [Suspect]
     Active Substance: AMLODIPINE BESYLATE
     Indication: Adverse drug reaction
     Dosage: 5 MILLIGRAM, ONCE A DAY (5MG X 1 PER DAY; ;)
     Route: 065
     Dates: start: 20230913, end: 20230916
  2. CANDESARTAN [Concomitant]
     Active Substance: CANDESARTAN
     Indication: Adverse drug reaction
     Dosage: UNK
     Route: 065
     Dates: start: 20160101

REACTIONS (1)
  - Vision blurred [Recovered/Resolved with Sequelae]

NARRATIVE: CASE EVENT DATE: 20230913
